FAERS Safety Report 8955551 (Version 1)
Quarter: 2012Q4

REPORT INFORMATION
  Report Type: Spontaneous
  Country: US (occurrence: None)
  Receive Date: 20121130
  Receipt Date: 20121130
  Transmission Date: 20130627
  Serious: Yes (Hospitalization)
  Sender: FDA-Public Use
  Company Number: FK201203516

PATIENT
  Age: 45 Year
  Sex: Female

DRUGS (3)
  1. GEMCITABINE (MANUFACTURER UNKNOWN) (GEMCITABINE) (GEMCITABINE) [Suspect]
  2. OXALIPLATIN [Suspect]
  3. BEVACIZUMAB [Suspect]

REACTIONS (4)
  - Posterior reversible encephalopathy syndrome [None]
  - Grand mal convulsion [None]
  - Blood pressure increased [None]
  - Sinus tachycardia [None]
